FAERS Safety Report 6673521-9 (Version None)
Quarter: 2010Q2

REPORT INFORMATION
  Report Type: 
  Country: None (occurrence: None)
  Receive Date: 20100408
  Receipt Date: 20100323
  Transmission Date: 20101027
  Serious: Yes (Other)
  Sender: FDA-Public Use
  Company Number: US-GENENTECH-261562

PATIENT
  Age: 72 Year
  Sex: Female

DRUGS (2)
  1. LUCENTIS [Suspect]
     Indication: MACULAR DEGENERATION
     Route: 031
  2. BEVACIZUMAB [Suspect]
     Indication: MACULAR DEGENERATION
     Route: 031

REACTIONS (1)
  - OCULAR HYPERTENSION [None]
